FAERS Safety Report 17037638 (Version 1)
Quarter: 2019Q4

REPORT INFORMATION
  Report Type: Spontaneous
  Country: NL (occurrence: GB)
  Receive Date: 20191115
  Receipt Date: 20191115
  Transmission Date: 20200122
  Serious: Yes (Death)
  Sender: FDA-Public Use
  Company Number: GB-FRESENIUS KABI-FK201912442

PATIENT
  Age: 94 Year
  Sex: Female

DRUGS (6)
  1. POTASSIUM CHLORIDE (MANUFACTURER UNKNOWN) [Suspect]
     Active Substance: POTASSIUM CHLORIDE
     Indication: HYPOKALAEMIA
     Dosage: UNK
     Route: 042
  2. PARACETAMOL [Concomitant]
     Active Substance: ACETAMINOPHEN
     Indication: HIP SURGERY
  3. ANALGESICS [Concomitant]
     Active Substance: UNSPECIFIED INGREDIENT
     Indication: HIP SURGERY
  4. SODIUM CHLORIDE. [Concomitant]
     Active Substance: SODIUM CHLORIDE
     Route: 042
  5. ANAESTHETIC [Concomitant]
     Active Substance: UNSPECIFIED INGREDIENT
     Indication: HIP SURGERY
  6. CODEINE [Suspect]
     Active Substance: CODEINE
     Indication: HIP SURGERY
     Dosage: GIVEN EVERY 6 HOURS

REACTIONS (3)
  - Overdose [Not Recovered/Not Resolved]
  - Metabolic acidosis [Fatal]
  - Hyperkalaemia [Not Recovered/Not Resolved]
